FAERS Safety Report 21839221 (Version 1)
Quarter: 2023Q1

REPORT INFORMATION
  Report Type: Spontaneous
  Country: US (occurrence: None)
  Receive Date: 20230107
  Receipt Date: 20230107
  Transmission Date: 20230418
  Serious: Yes (Death)
  Sender: FDA-Public Use
  Company Number: None

PATIENT
  Age: 68 Year
  Sex: Male
  Weight: 108.41 kg

DRUGS (1)
  1. PRIMIDONE [Suspect]
     Active Substance: PRIMIDONE
     Indication: Tremor
     Dosage: FREQUENCY : TWICE A DAY;?
     Route: 048
     Dates: start: 20181205, end: 20201027

REACTIONS (3)
  - Intentional self-injury [None]
  - Gun shot wound [None]
  - Completed suicide [None]

NARRATIVE: CASE EVENT DATE: 20201027
